FAERS Safety Report 15434809 (Version 1)
Quarter: 2018Q3

REPORT INFORMATION
  Report Type: Spontaneous
  Country: US (occurrence: US)
  Receive Date: 20180922
  Receipt Date: 20180922
  Transmission Date: 20181010
  Serious: No
  Sender: FDA-Public Use
  Company Number: None

PATIENT
  Age: 61 Year
  Sex: Female
  Weight: 103.5 kg

DRUGS (7)
  1. PAROXETINE. [Concomitant]
     Active Substance: PAROXETINE
  2. FARXIGA [Suspect]
     Active Substance: DAPAGLIFLOZIN PROPANEDIOL
     Indication: DIABETES MELLITUS
     Dosage: ?          QUANTITY:1 TABLET(S);?
     Route: 048
     Dates: start: 20180801, end: 20180917
  3. LEVOTHYROXINE, [Concomitant]
  4. JANUMET [Concomitant]
     Active Substance: METFORMIN HYDROCHLORIDE\SITAGLIPTIN PHOSPHATE
  5. TRIAMTERENE. [Concomitant]
     Active Substance: TRIAMTERENE
  6. LIPITOR [Concomitant]
     Active Substance: ATORVASTATIN CALCIUM
  7. NATURAL CALM [Concomitant]

REACTIONS (7)
  - Insomnia [None]
  - Tremor [None]
  - Palpitations [None]
  - Anxiety [None]
  - Fungal infection [None]
  - Feeling jittery [None]
  - Blood pressure increased [None]

NARRATIVE: CASE EVENT DATE: 20180917
